FAERS Safety Report 14537425 (Version 5)
Quarter: 2019Q2

REPORT INFORMATION
  Report Type: Spontaneous
  Country: US (occurrence: US)
  Receive Date: 20180215
  Receipt Date: 20190408
  Transmission Date: 20190711
  Serious: Yes (Death, Hospitalization, Other)
  Sender: FDA-Public Use
  Company Number: US-ACTELION-A-NJ2018-167548

PATIENT
  Age: 88 Year
  Sex: Female
  Weight: 62.13 kg

DRUGS (3)
  1. ELIQUIS [Concomitant]
     Active Substance: APIXABAN
  2. UPTRAVI [Suspect]
     Active Substance: SELEXIPAG
     Indication: PULMONARY ARTERIAL HYPERTENSION
     Dosage: 600 MCG, BID
     Route: 048
  3. XARELTO [Concomitant]
     Active Substance: RIVAROXABAN

REACTIONS (13)
  - Fluid retention [Unknown]
  - Upper limb fracture [Unknown]
  - Head injury [Unknown]
  - Dyspnoea [Unknown]
  - Dementia Alzheimer^s type [Unknown]
  - Hypoacusis [Unknown]
  - Limb injury [Unknown]
  - Fall [Unknown]
  - Restlessness [Unknown]
  - Hospice care [Unknown]
  - Death [Fatal]
  - Cardiac failure congestive [Unknown]
  - Dementia [Unknown]

NARRATIVE: CASE EVENT DATE: 20190310
